FAERS Safety Report 4506623-3 (Version None)
Quarter: 2004Q4

REPORT INFORMATION
  Report Type: 
  Country: None (occurrence: None)
  Receive Date: 20041117
  Receipt Date: 20041103
  Transmission Date: 20050328
  Serious: Yes (Death, Hospitalization)
  Sender: FDA-Public Use
  Company Number: 140647USA

PATIENT
  Age: 36 Year
  Sex: Male

DRUGS (11)
  1. FLUOROURACIL [Suspect]
     Indication: COLORECTAL CANCER
     Dosage: 1810 DAILY INTRAVENOUS (NOS)
     Route: 042
     Dates: start: 20040108, end: 20040303
  2. OXALIPLATIN [Suspect]
     Indication: COLORECTAL CANCER
     Dosage: 154 MILLIGRAM DAILY INTRAVENOUS (NOS)
     Route: 042
     Dates: start: 20040108, end: 20040301
  3. LEUCOVORIN [Suspect]
     Indication: COLORECTAL CANCER
     Dosage: 360 DAILY INTRAVENOUS (NOS)
     Route: 042
     Dates: start: 20040108, end: 20040302
  4. CLONIDINE [Concomitant]
  5. LOVENOX [Concomitant]
  6. EPOGEN [Concomitant]
  7. PHENERGAN [Concomitant]
  8. ZOFRAN [Concomitant]
  9. ATIVAN [Concomitant]
  10. OXY-IR [Concomitant]
  11. MEGACE [Concomitant]

REACTIONS (27)
  - ABDOMINAL PAIN [None]
  - ANURIA [None]
  - BLOOD CREATININE INCREASED [None]
  - BLOOD SODIUM DECREASED [None]
  - BLOOD UREA INCREASED [None]
  - CARDIAC ENZYMES INCREASED [None]
  - CARDIO-RESPIRATORY ARREST [None]
  - DEHYDRATION [None]
  - DYSPNOEA [None]
  - GASTRIC ULCER HAEMORRHAGE [None]
  - GASTROINTESTINAL HAEMORRHAGE [None]
  - HAEMOGLOBIN DECREASED [None]
  - HEART RATE INCREASED [None]
  - HYPOTENSION [None]
  - INFREQUENT BOWEL MOVEMENTS [None]
  - INTESTINAL MASS [None]
  - INTESTINAL STOMA COMPLICATION [None]
  - MARKEDLY REDUCED DIETARY INTAKE [None]
  - MYOCARDIAL INFARCTION [None]
  - NAUSEA [None]
  - PALPITATIONS [None]
  - PO2 DECREASED [None]
  - PULMONARY OEDEMA [None]
  - RESPIRATORY DISTRESS [None]
  - SEPTIC SHOCK [None]
  - STAPHYLOCOCCAL SEPSIS [None]
  - VOMITING [None]
